FAERS Safety Report 23789010 (Version 2)
Quarter: 2024Q2

REPORT INFORMATION
  Report Type: Spontaneous
  Country: JP (occurrence: JP)
  Receive Date: 20240426
  Receipt Date: 20240527
  Transmission Date: 20240717
  Serious: No
  Sender: FDA-Public Use
  Company Number: JP-OTSUKA-2024_011209

PATIENT
  Age: 33 Year
  Sex: Female

DRUGS (4)
  1. AJOVY [Suspect]
     Active Substance: FREMANEZUMAB-VFRM
     Indication: Migraine
     Dosage: 225/SHOT
     Route: 058
     Dates: start: 20231124, end: 20231124
  2. AJOVY [Suspect]
     Active Substance: FREMANEZUMAB-VFRM
     Indication: Migraine
     Dosage: 225/SHOT
     Route: 058
     Dates: start: 20231027, end: 20231027
  3. AJOVY [Suspect]
     Active Substance: FREMANEZUMAB-VFRM
     Indication: Migraine
     Dosage: 225/SHOT
     Route: 058
     Dates: start: 20230929, end: 20230929
  4. AJOVY [Suspect]
     Active Substance: FREMANEZUMAB-VFRM
     Indication: Migraine
     Dosage: 225/SHOT
     Route: 058
     Dates: start: 20240131, end: 2024

REACTIONS (1)
  - Injection site swelling [Recovered/Resolved]

NARRATIVE: CASE EVENT DATE: 20240319
